FAERS Safety Report 9301063 (Version 1)
Quarter: 2013Q2

REPORT INFORMATION
  Report Type: Spontaneous
  Country: US (occurrence: None)
  Receive Date: 20130520
  Receipt Date: 20130520
  Transmission Date: 20140414
  Serious: Yes (Hospitalization)
  Sender: FDA-Public Use
  Company Number: None

PATIENT
  Age: 81 Year
  Sex: Female
  Weight: 67.13 kg

DRUGS (2)
  1. TRAMADOL 50MG [Suspect]
     Indication: BACK PAIN
     Dosage: 50MG, 1-2 TID, PO
     Route: 048
     Dates: start: 20120515, end: 20130418
  2. TRAMADOL 50MG [Suspect]
     Indication: SCIATICA
     Dosage: 50MG, 1-2 TID, PO
     Route: 048
     Dates: start: 20120515, end: 20130418

REACTIONS (4)
  - Mental status changes [None]
  - Speech disorder [None]
  - Hallucination [None]
  - Confusional state [None]
